FAERS Safety Report 25777044 (Version 1)
Quarter: 2025Q3

REPORT INFORMATION
  Report Type: Spontaneous
  Country: CN (occurrence: CN)
  Receive Date: 20250909
  Receipt Date: 20250909
  Transmission Date: 20251020
  Serious: Yes (Hospitalization, Other)
  Sender: BAXTER
  Company Number: None

PATIENT
  Age: 69 Year
  Sex: Female
  Weight: 33.7 kg

DRUGS (8)
  1. CYCLOPHOSPHAMIDE [Suspect]
     Active Substance: CYCLOPHOSPHAMIDE
     Indication: Diffuse large B-cell lymphoma
     Dosage: 0.5 G, QD, IVGTT, ONCE
     Route: 041
     Dates: start: 20250824, end: 20250824
  2. SODIUM CHLORIDE [Suspect]
     Active Substance: SODIUM CHLORIDE
     Dosage: 50 ML, QD, 0.9%, IVGTT, ONCE
     Route: 041
     Dates: start: 20250824, end: 20250824
  3. RITUXIMAB [Suspect]
     Active Substance: RITUXIMAB
     Indication: Diffuse large B-cell lymphoma
     Dosage: 500 MG, QD, IVGTT, ONCE
     Route: 041
     Dates: start: 20250823, end: 20250823
  4. VINDESINE SULFATE [Suspect]
     Active Substance: VINDESINE SULFATE
     Indication: Diffuse large B-cell lymphoma
     Dosage: 2 MG, QD, IVGTT, ONCE
     Route: 041
     Dates: start: 20250824, end: 20250824
  5. DOXORUBICIN HYDROCHLORIDE [Suspect]
     Active Substance: DOXORUBICIN HYDROCHLORIDE
     Indication: Diffuse large B-cell lymphoma
     Dosage: 20 MG, QD, IVGTT, ONCE
     Route: 041
     Dates: start: 20250824, end: 20250824
  6. SODIUM CHLORIDE [Suspect]
     Active Substance: SODIUM CHLORIDE
     Indication: Medication dilution
     Dosage: 500 ML, QD, IVGTT, ONCE WITH RITUXIMAB
     Route: 041
     Dates: start: 20250823, end: 20250823
  7. SODIUM CHLORIDE [Suspect]
     Active Substance: SODIUM CHLORIDE
     Dosage: 100 ML, QD, IVGTT, ONCE WITH CYCLOPHOSPHAMIDE
     Route: 041
     Dates: start: 20250824, end: 20250824
  8. DEXTROSE [Suspect]
     Active Substance: DEXTROSE MONOHYDRATE
     Indication: Medication dilution
     Dosage: 250 ML, QD, IVGTT, ONCE, WITH DOXORUBICIN
     Route: 041
     Dates: start: 20250824, end: 20250824

REACTIONS (2)
  - White blood cell count decreased [Recovering/Resolving]
  - Neutrophil count decreased [Recovering/Resolving]

NARRATIVE: CASE EVENT DATE: 20250826
